FAERS Safety Report 8204407-6 (Version None)
Quarter: 2012Q1

REPORT INFORMATION
  Report Type: 
  Country: None (occurrence: None)
  Receive Date: 20120313
  Receipt Date: 20120313
  Transmission Date: 20120608
  Serious: Yes (Other)
  Sender: FDA-Public Use
  Company Number: None

PATIENT
  Age: 93 Year
  Sex: Female

DRUGS (1)
  1. POLYMYXIN B [Suspect]
     Dosage: 300,000 UNITS
     Route: 042
     Dates: start: 20111003, end: 20111011

REACTIONS (3)
  - CARDIO-RESPIRATORY ARREST [None]
  - RENAL FAILURE [None]
  - NEPHROPATHY TOXIC [None]
